FAERS Safety Report 10150495 (Version 1)
Quarter: 2014Q2

REPORT INFORMATION
  Report Type: Spontaneous
  Country: GB (occurrence: GB)
  Receive Date: 20140502
  Receipt Date: 20140502
  Transmission Date: 20141212
  Serious: Yes (Hospitalization)
  Sender: FDA-Public Use
  Company Number: GB-WATSON-2014-08805

PATIENT
  Age: 68 Year
  Sex: Female

DRUGS (1)
  1. NAPROXEN (UNKNOWN) [Suspect]
     Indication: RHEUMATOID ARTHRITIS
     Dosage: 500 MG, BID
     Route: 048
     Dates: end: 20140202

REACTIONS (4)
  - Acute myocardial infarction [Recovering/Resolving]
  - Renal failure acute [Recovered/Resolved]
  - Dyspnoea [Unknown]
  - Malaise [Unknown]
